FAERS Safety Report 21090893 (Version 2)
Quarter: 2022Q4

REPORT INFORMATION
  Report Type: Report from Study
  Country: BG (occurrence: BG)
  Receive Date: 20220716
  Receipt Date: 20221021
  Transmission Date: 20230113
  Serious: Yes (Hospitalization, Other)
  Sender: FDA-Public Use
  Company Number: BG-ROCHE-3059873

PATIENT
  Age: 56 Year
  Sex: Female
  Weight: 78 kg

DRUGS (25)
  1. PACLITAXEL [Suspect]
     Active Substance: PACLITAXEL
     Indication: Non-small cell lung cancer metastatic
     Dosage: UNIT DOSE : 300 MG
     Dates: start: 20211214
  2. CARBOPLATIN [Suspect]
     Active Substance: CARBOPLATIN
     Indication: Non-small cell lung cancer metastatic
     Dosage: UNIT DOSE : 500 MG
     Dates: start: 20211214
  3. BEVACIZUMAB [Suspect]
     Active Substance: BEVACIZUMAB
     Indication: Non-small cell lung cancer metastatic
     Dosage: UNIT DOSE : 1000 MG
     Dates: start: 20211214
  4. LOPERAMIDE [Concomitant]
     Active Substance: LOPERAMIDE
     Indication: Product used for unknown indication
     Dates: start: 20220414, end: 20220416
  5. DEXTROSE [Concomitant]
     Active Substance: DEXTROSE
     Indication: Prophylaxis
     Dosage: FREQUENCY TIME : 1 DAYS , DURATION : 3 DAYS
     Dates: start: 20220414, end: 20220416
  6. DEXTROSE [Concomitant]
     Active Substance: DEXTROSE
     Dosage: FREQUENCY TIME : 1 DAYS , DURATION : 3 DAYS
     Dates: start: 20220322, end: 20220324
  7. ANAFTIN [Concomitant]
     Indication: Product used for unknown indication
     Dosage: FREQUENCY TIME : 0.5 DAYS , DURATION : 47 DAYS
     Dates: start: 20211220, end: 20220204
  8. VITAMIN C [Concomitant]
     Active Substance: ASCORBIC ACID
     Indication: Product used for unknown indication
     Dosage: VITAMIN C [ASCORBIC ACID] ,FREQUENCY TIME :0.5  DAYS , DURATION : 3 DAYS
     Dates: start: 20220414, end: 20220416
  9. VITAMIN C [Concomitant]
     Active Substance: ASCORBIC ACID
     Dosage: VITAMIN C [ASCORBIC ACID]  , FREQUENCY TIME : 1 DAYS , DURATION : 3 DAYS
     Dates: start: 20220322, end: 20220324
  10. FAMOTIDINE [Concomitant]
     Active Substance: FAMOTIDINE
     Indication: Prophylaxis
     Dosage: FREQUENCY TIME : 0.5 DAYS , DURATION : 3 DAYS
     Dates: start: 20220414, end: 20220416
  11. SOPHAFYLLIN [Concomitant]
     Indication: Product used for unknown indication
     Dosage: FREQUENCY TIME : 1 DAYS , DURATION : 3 DAYS
     Dates: start: 20220322, end: 20220324
  12. DEXAMETHASONE [Concomitant]
     Active Substance: DEXAMETHASONE
     Indication: Prophylaxis
     Dosage: FREQUENCY TIME : 1 DAYS , DURATION : 1 DAYS
     Dates: start: 20220322, end: 20220322
  13. DEXAMETHASONE [Concomitant]
     Active Substance: DEXAMETHASONE
     Dosage: FREQUENCY TIME : 1 DAYS , DURATION : 1 DAYS
     Dates: start: 20220414, end: 20220414
  14. METHYLPREDNISOLONE [Concomitant]
     Active Substance: METHYLPREDNISOLONE
     Indication: Product used for unknown indication
     Dosage: FREQUENCY TIME : 0.5 DAYS , DURATION : 3 DAYS
     Dates: start: 20220322, end: 20220324
  15. ATEZOLIZUMAB [Concomitant]
     Active Substance: ATEZOLIZUMAB
     Indication: Non-small cell lung cancer metastatic
  16. ATEZOLIZUMAB [Concomitant]
     Active Substance: ATEZOLIZUMAB
     Dosage: MOST RECENT DATE OF ADMINISTRATION PRIOR TO SAE: 16/FEB/2022 , UNIT DOSE : 1200 MG , FREQUENCY TIME
     Dates: start: 20211214
  17. CLONIDINE HYDROCHLORIDE [Concomitant]
     Active Substance: CLONIDINE HYDROCHLORIDE
     Indication: Product used for unknown indication
     Dosage: FREQUENCY TIME : 1 DAYS , DURATION : 1 DAYS
     Dates: start: 20220216, end: 20220216
  18. DEXOFEN [Concomitant]
     Indication: Product used for unknown indication
     Dosage: DEXOFEN [DEXKETOPROFEN TROMETAMOL] ,FREQUENCY TIME :0.5 DAYS , DURATION : 22 DAYS
     Dates: start: 20220115, end: 20220205
  19. GENTAMICIN [Concomitant]
     Active Substance: GENTAMICIN
     Indication: Prophylaxis
     Dosage: FREQUENCY TIME : 1 DAYS , DURATION : 3 DAYS
     Dates: start: 20220414, end: 20220416
  20. BRONCHOLYTIN [Concomitant]
     Indication: Cough
     Dosage: BRONCHOLYTIN [EPHEDRINE HYDROCHLORIDE;GLAUCINE HYDROBROMIDE]
     Dates: start: 20220616
  21. BROMHEXINE [Concomitant]
     Active Substance: BROMHEXINE
     Indication: Product used for unknown indication
     Dosage: FREQUENCY TIME : 0.5 DAYS , DURATION : 3 DAYS
     Dates: start: 20220322, end: 20220324
  22. BISOPROLOL FUMARATE [Concomitant]
     Active Substance: BISOPROLOL FUMARATE
     Indication: Product used for unknown indication
     Dosage: FREQUENCY TIME : 1 DAYS
  23. METRONIDAZOLE [Concomitant]
     Active Substance: METRONIDAZOLE
     Indication: Prophylaxis
     Dosage: FREQUENCY TIME : 0.5 DAYS , DURATION : 3 DAYS
     Dates: start: 20220414, end: 20220416
  24. SODIUM CHLORIDE [Concomitant]
     Active Substance: SODIUM CHLORIDE
     Indication: Product used for unknown indication
     Dosage: FREQUENCY TIME : 1 DAYS , DURATION : 3 DAYS
     Dates: start: 20220322, end: 20220324
  25. TERCEF [Concomitant]
     Indication: Prophylaxis
     Dosage: FREQUENCY TIME : 0.5 DAYS , DURATION : 3 DAYS
     Dates: start: 20220414, end: 20220416

REACTIONS (11)
  - Dyspnoea [Recovered/Resolved]
  - Neuropathy peripheral [Not Recovered/Not Resolved]
  - Hypertension [Recovered/Resolved]
  - Aphthous ulcer [Recovered/Resolved]
  - Oropharyngeal pain [Recovered/Resolved]
  - Dizziness [Recovered/Resolved]
  - Cough [Recovered/Resolved]
  - Alopecia [Not Recovered/Not Resolved]
  - Chest pain [Not Recovered/Not Resolved]
  - Headache [Recovered/Resolved]
  - Bone pain [Not Recovered/Not Resolved]

NARRATIVE: CASE EVENT DATE: 20211220
